FAERS Safety Report 23128392 (Version 2)
Quarter: 2025Q2

REPORT INFORMATION
  Report Type: Report from Study
  Country: CA (occurrence: CA)
  Receive Date: 20231031
  Receipt Date: 20250523
  Transmission Date: 20250717
  Serious: Yes (Other)
  Sender: TAKEDA
  Company Number: CA-TAKEDA-2023TUS095932

PATIENT
  Age: 73 Year
  Sex: Male
  Weight: 89.1 kg

DRUGS (30)
  1. VEDOLIZUMAB [Suspect]
     Active Substance: VEDOLIZUMAB
     Indication: Colitis ulcerative
     Dosage: 300 MILLIGRAM, Q6WEEKS
     Dates: start: 20230818
  2. VEDOLIZUMAB [Suspect]
     Active Substance: VEDOLIZUMAB
  3. ZOPICLONE [Concomitant]
     Active Substance: ZOPICLONE
     Dosage: 3.75 MILLIGRAM, QD
     Dates: start: 20220315
  4. BISOPROLOL [Concomitant]
     Active Substance: BISOPROLOL
     Dosage: 5 MILLIGRAM, QD
     Dates: start: 20220503
  5. BISOPROLOL [Concomitant]
     Active Substance: BISOPROLOL
     Dosage: 5 MILLIGRAM, QD
     Dates: start: 20230427
  6. Cortiment [Concomitant]
     Dosage: 9 MILLIGRAM, QD
     Dates: start: 20230629
  7. SILDENAFIL [Concomitant]
     Active Substance: SILDENAFIL
     Dosage: 50 MILLIGRAM, QD
     Dates: start: 20210929
  8. SILDENAFIL [Concomitant]
     Active Substance: SILDENAFIL
     Dosage: 50 MILLIGRAM, QD
     Dates: start: 20220527
  9. SILDENAFIL [Concomitant]
     Active Substance: SILDENAFIL
     Dosage: 50 MILLIGRAM, QD
     Dates: start: 20230206
  10. SPIRONOLACTONE [Concomitant]
     Active Substance: SPIRONOLACTONE
     Dosage: UNK UNK, QD
     Dates: start: 20230331
  11. MESALAMINE [Concomitant]
     Active Substance: MESALAMINE
     Dosage: UNK UNK, QD
     Dates: start: 20210426
  12. MESALAMINE [Concomitant]
     Active Substance: MESALAMINE
     Dosage: UNK UNK, QD
     Dates: start: 20220214
  13. MESALAMINE [Concomitant]
     Active Substance: MESALAMINE
     Dosage: UNK UNK, QD
     Dates: start: 20220707
  14. MESALAMINE [Concomitant]
     Active Substance: MESALAMINE
     Dosage: UNK UNK, QD
     Dates: start: 20230629
  15. ROSUVASTATIN [Concomitant]
     Active Substance: ROSUVASTATIN
     Dosage: 20 MILLIGRAM, QD
     Dates: start: 20210622
  16. ROSUVASTATIN [Concomitant]
     Active Substance: ROSUVASTATIN
     Dosage: 20 MILLIGRAM, QD
     Dates: start: 20230206
  17. ENTRESTO [Concomitant]
     Active Substance: SACUBITRIL\VALSARTAN
     Dosage: UNK UNK, BID
     Dates: start: 20221116
  18. ENTRESTO [Concomitant]
     Active Substance: SACUBITRIL\VALSARTAN
     Dosage: UNK UNK, BID
     Dates: start: 20221206
  19. ENTRESTO [Concomitant]
     Active Substance: SACUBITRIL\VALSARTAN
     Dosage: UNK UNK, BID
     Dates: start: 20221221
  20. AMLODIPINE [Concomitant]
     Active Substance: AMLODIPINE BESYLATE
     Dosage: 10 MILLIGRAM, QD
     Dates: start: 20220315
  21. AMLODIPINE [Concomitant]
     Active Substance: AMLODIPINE BESYLATE
     Dosage: 10 MILLIGRAM, QD
     Dates: start: 20220527
  22. AMLODIPINE [Concomitant]
     Active Substance: AMLODIPINE BESYLATE
     Dosage: 10 MILLIGRAM, QD
     Dates: start: 20221114
  23. NITROGLYCERIN [Concomitant]
     Active Substance: NITROGLYCERIN
     Indication: Chest pain
  24. PERINDOPRIL [Concomitant]
     Active Substance: PERINDOPRIL
     Dosage: 8 MILLIGRAM, QD
     Dates: start: 20210622
  25. PERINDOPRIL [Concomitant]
     Active Substance: PERINDOPRIL
     Dosage: 8 MILLIGRAM, BID
     Dates: start: 20220603
  26. FUCIDIN [Concomitant]
     Active Substance: FUSIDATE SODIUM
     Dosage: UNK UNK, BID
     Dates: start: 20220317
  27. Apo-metoprolol (type l) [Concomitant]
     Dosage: UNK UNK, BID
     Dates: start: 20210622
  28. EPIPEN [Concomitant]
     Active Substance: EPINEPHRINE
  29. PREDNISONE [Concomitant]
     Active Substance: PREDNISONE
     Dosage: UNK UNK, QD
     Dates: start: 20230817
  30. PREDNISONE [Concomitant]
     Active Substance: PREDNISONE
     Dosage: UNK, 1/WEEK

REACTIONS (8)
  - Chest discomfort [Not Recovered/Not Resolved]
  - Blood pressure decreased [Not Recovered/Not Resolved]
  - Oxygen saturation decreased [Not Recovered/Not Resolved]
  - Paraesthesia [Not Recovered/Not Resolved]
  - Defaecation urgency [Recovered/Resolved]
  - Drooling [Recovered/Resolved]
  - Off label use [Unknown]
  - Nausea [Recovered/Resolved]

NARRATIVE: CASE EVENT DATE: 20230818
